FAERS Safety Report 11013699 (Version 2)
Quarter: 2015Q2

REPORT INFORMATION
  Report Type: Spontaneous
  Country: US (occurrence: US)
  Receive Date: 20150411
  Receipt Date: 20150526
  Transmission Date: 20150821
  Serious: No
  Sender: FDA-Public Use
  Company Number: US-JNJFOC-20120904800

PATIENT

DRUGS (2)
  1. OXYBUTYNIN HYDROCHLORIDE [Suspect]
     Active Substance: OXYBUTYNIN CHLORIDE
     Indication: HYPERTONIC BLADDER
     Dosage: 6 CONSECUTIVE DAYS (DAYS 2-7)
     Route: 048
  2. PLACEBO [Suspect]
     Active Substance: UNSPECIFIED INGREDIENT
     Indication: HYPERTONIC BLADDER
     Dosage: 6 CONSECUTIVE DAYS (DAYS 2-7)
     Route: 065

REACTIONS (11)
  - Dry eye [Unknown]
  - Nausea [Unknown]
  - Nasal dryness [Unknown]
  - Headache [Unknown]
  - Dizziness [Unknown]
  - Urinary hesitation [Unknown]
  - Constipation [Unknown]
  - Urine flow decreased [Unknown]
  - Dry mouth [Unknown]
  - Dry throat [Unknown]
  - Cough [Unknown]
